FAERS Safety Report 24394173 (Version 6)
Quarter: 2025Q4

REPORT INFORMATION
  Report Type: Report from Study
  Country: EU (occurrence: EU)
  Receive Date: 20241003
  Receipt Date: 20251003
  Transmission Date: 20260118
  Serious: Yes (Hospitalization)
  Sender: JOHNSON AND JOHNSON
  Company Number: EU-JNJFOC-20240970102

PATIENT
  Age: 57 Year
  Sex: Female
  Weight: 70 kg

DRUGS (1)
  1. SPRAVATO [Suspect]
     Active Substance: ESKETAMINE
     Indication: Depression
     Dosage: 28X2 UNITS (56 MILLIGRAMS)
     Route: 045
     Dates: start: 20240104

REACTIONS (1)
  - Depressive symptom [Recovered/Resolved]

NARRATIVE: CASE EVENT DATE: 20240916
